FAERS Safety Report 4270762-5 (Version None)
Quarter: 2004Q1

REPORT INFORMATION
  Report Type: 
  Country: None (occurrence: None)
  Receive Date: 20040114
  Receipt Date: 20040108
  Transmission Date: 20041129
  Serious: Yes (Death, Hospitalization)
  Sender: FDA-Public Use
  Company Number: US-ROCHE-355364

PATIENT
  Age: 61 Year
  Sex: Male
  Weight: 86.8 kg

DRUGS (2)
  1. CAPECITABINE [Suspect]
     Dosage: INTERMITTENT THERAPY OF TREATMENT ON DAYS 1 -14 EVERY 21 DAYS TOTAL DOSE RECEIVED 850MG
     Route: 048
     Dates: start: 20031222
  2. OXALIPLATIN [Suspect]
     Dosage: TOTAL DOSE RECEIVED 130MG
     Route: 042
     Dates: start: 20031222

REACTIONS (7)
  - ACUTE PRERENAL FAILURE [None]
  - ALANINE AMINOTRANSFERASE INCREASED [None]
  - ASPARTATE AMINOTRANSFERASE INCREASED [None]
  - BLOOD CREATININE ABNORMAL [None]
  - BLOOD UREA ABNORMAL [None]
  - DISEASE PROGRESSION [None]
  - HYPERKALAEMIA [None]
